FAERS Safety Report 7264952-7 (Version None)
Quarter: 2011Q1

REPORT INFORMATION
  Report Type: 
  Country: None (occurrence: None)
  Receive Date: 20110131
  Receipt Date: 20101220
  Transmission Date: 20110831
  Serious: Yes (Hospitalization, Other)
  Sender: FDA-Public Use
  Company Number: US-BAYER-201036117NA

PATIENT
  Sex: Female
  Weight: 86.168 kg

DRUGS (4)
  1. ALBUTEROL [Concomitant]
  2. ZITHROMAX [Concomitant]
     Dosage: UNK
     Dates: start: 20031101
  3. YASMIN [Suspect]
     Indication: CONTRACEPTION
     Dosage: UNK
     Route: 048
     Dates: start: 20030901, end: 20031201
  4. ASCORBIC ACID [Concomitant]

REACTIONS (8)
  - CHEST PAIN [None]
  - MENTAL DISORDER [None]
  - PULMONARY EMBOLISM [None]
  - BACK PAIN [None]
  - DYSPNOEA [None]
  - COUGH [None]
  - PULMONARY INFARCTION [None]
  - CHEST DISCOMFORT [None]
